FAERS Safety Report 16135964 (Version 1)
Quarter: 2019Q1

REPORT INFORMATION
  Report Type: Spontaneous
  Country: JP (occurrence: JP)
  Receive Date: 20190329
  Receipt Date: 20190329
  Transmission Date: 20190418
  Serious: Yes (Other)
  Sender: FDA-Public Use
  Company Number: JP-ELI_LILLY_AND_COMPANY-JP201903011399

PATIENT
  Age: 78 Year
  Sex: Male

DRUGS (3)
  1. CARBOPLATIN. [Concomitant]
     Active Substance: CARBOPLATIN
     Indication: LUNG ADENOCARCINOMA STAGE IV
  2. BEVACIZUMAB. [Concomitant]
     Active Substance: BEVACIZUMAB
     Indication: LUNG ADENOCARCINOMA STAGE IV
  3. ALIMTA [Suspect]
     Active Substance: PEMETREXED DISODIUM
     Indication: LUNG ADENOCARCINOMA STAGE IV
     Route: 041

REACTIONS (4)
  - Dyspnoea [Recovering/Resolving]
  - Hypertensive heart disease [Recovering/Resolving]
  - Gastrointestinal perforation [Unknown]
  - Oedema peripheral [Recovering/Resolving]
